FAERS Safety Report 6123900-3 (Version None)
Quarter: 2009Q1

REPORT INFORMATION
  Report Type: 
  Country: None (occurrence: None)
  Receive Date: 20090319
  Receipt Date: 20090309
  Transmission Date: 20090719
  Serious: Yes (Hospitalization)
  Sender: FDA-Public Use
  Company Number: US-BIOGENIDEC-2009BI001367

PATIENT
  Age: 31 Year
  Sex: Female

DRUGS (3)
  1. AVONEX [Suspect]
     Indication: MULTIPLE SCLEROSIS
     Route: 030
     Dates: start: 20041004, end: 20050930
  2. AVONEX [Suspect]
     Route: 030
     Dates: start: 20060206, end: 20061013
  3. AVONEX [Suspect]
     Route: 030
     Dates: start: 20061202

REACTIONS (7)
  - ANKLE FRACTURE [None]
  - CONVULSION [None]
  - MUSCLE INJURY [None]
  - NERVE INJURY [None]
  - PERIORBITAL HAEMATOMA [None]
  - ROAD TRAFFIC ACCIDENT [None]
  - UPPER LIMB FRACTURE [None]
